FAERS Safety Report 6149646-3 (Version None)
Quarter: 2009Q2

REPORT INFORMATION
  Report Type: 
  Country: None (occurrence: None)
  Receive Date: 20090409
  Receipt Date: 20090331
  Transmission Date: 20091009
  Serious: Yes (Hospitalization)
  Sender: FDA-Public Use
  Company Number: FR-AVENTIS-200911755EU

PATIENT
  Age: 86 Year
  Sex: Female

DRUGS (4)
  1. FLUDEX                             /00340101/ [Suspect]
     Route: 048
  2. CORDARONE [Suspect]
     Route: 048
  3. HEMIGOXINE NATIVELLE [Suspect]
     Route: 048
  4. PREVISCAN                          /00789001/ [Concomitant]

REACTIONS (3)
  - DRUG INTERACTION [None]
  - FALL [None]
  - PELVIC FRACTURE [None]
